FAERS Safety Report 24366334 (Version 7)
Quarter: 2024Q4

REPORT INFORMATION
  Report Type: Spontaneous
  Country: ES (occurrence: ES)
  Receive Date: 20240926
  Receipt Date: 20241216
  Transmission Date: 20250115
  Serious: No
  Sender: PFIZER
  Company Number: ES-PFIZER INC-202400258007

PATIENT
  Age: 15 Year
  Sex: Male

DRUGS (1)
  1. SOMATROPIN [Suspect]
     Active Substance: SOMATROPIN
     Dosage: 2 MG, DAILY
     Route: 058

REACTIONS (4)
  - Device issue [Unknown]
  - Device failure [Unknown]
  - Device difficult to use [Unknown]
  - Drug dose omission by device [Unknown]

NARRATIVE: CASE EVENT DATE: 20240918
